FAERS Safety Report 19852992 (Version 1)
Quarter: 2021Q3

REPORT INFORMATION
  Report Type: Spontaneous
  Country: US (occurrence: US)
  Receive Date: 20210919
  Receipt Date: 20210919
  Transmission Date: 20211014
  Serious: No
  Sender: FDA-Public Use
  Company Number: US-SA-2021SA305002

PATIENT
  Age: 39 Year
  Sex: Female

DRUGS (13)
  1. KEVZARA [Suspect]
     Active Substance: SARILUMAB
     Indication: RHEUMATOID ARTHRITIS
     Dosage: 200 MG, QOW
     Route: 058
     Dates: start: 202107, end: 2021
  2. EPINEPHRINE. [Concomitant]
     Active Substance: EPINEPHRINE
  3. VITAMINS NOS [Concomitant]
     Active Substance: VITAMINS
  4. VITAMIN D3 [Concomitant]
     Active Substance: CHOLECALCIFEROL
  5. NEXIUM [Concomitant]
     Active Substance: ESOMEPRAZOLE MAGNESIUM
  6. XOPENEX [Concomitant]
     Active Substance: LEVALBUTEROL HYDROCHLORIDE
  7. MAGNESIUM [Concomitant]
     Active Substance: MAGNESIUM
  8. MOVE FREE JOINT HEALTH [Concomitant]
  9. ZINC. [Concomitant]
     Active Substance: ZINC
  10. METHOTREXATE. [Concomitant]
     Active Substance: METHOTREXATE
  11. TOPIRAMATE. [Concomitant]
     Active Substance: TOPIRAMATE
  12. BUPRENORPHINE. [Concomitant]
     Active Substance: BUPRENORPHINE
  13. ALLEGRA ALLERGY [Concomitant]
     Active Substance: FEXOFENADINE HYDROCHLORIDE

REACTIONS (1)
  - Bronchitis [Unknown]

NARRATIVE: CASE EVENT DATE: 2021
